FAERS Safety Report 7267824-7 (Version None)
Quarter: 2011Q1

REPORT INFORMATION
  Report Type: 
  Country: None (occurrence: None)
  Receive Date: 20110201
  Receipt Date: 20110124
  Transmission Date: 20110831
  Serious: Yes (Other)
  Sender: FDA-Public Use
  Company Number: B0694573A

PATIENT
  Sex: Female

DRUGS (3)
  1. METFORMIN HCL [Concomitant]
     Dosage: 3000MG PER DAY
     Route: 065
  2. VOXRA [Suspect]
     Indication: ANXIETY
     Dosage: 150MG PER DAY
     Route: 065
     Dates: start: 20110113
  3. GLIBENKLAMID [Concomitant]
     Route: 065

REACTIONS (5)
  - AGGRESSION [None]
  - HYPERHIDROSIS [None]
  - MALAISE [None]
  - ILL-DEFINED DISORDER [None]
  - LIBIDO DECREASED [None]
